FAERS Safety Report 6795696-3 (Version None)
Quarter: 2010Q2

REPORT INFORMATION
  Report Type: 
  Country: None (occurrence: None)
  Receive Date: 20100625
  Receipt Date: 20100621
  Transmission Date: 20101027
  Serious: Yes (Death, Life-Threatening)
  Sender: FDA-Public Use
  Company Number: BE-ABBOTT-10P-013-0619430-00

PATIENT
  Sex: Female

DRUGS (5)
  1. HUMIRA [Suspect]
     Indication: ANKYLOSING SPONDYLITIS
     Dates: start: 20090731, end: 20100115
  2. LEDERTREXATE [Concomitant]
     Indication: IMMUNOSUPPRESSANT DRUG THERAPY
     Dosage: 10 MG/WEEK
     Dates: start: 20040927
  3. FOLIC ACID [Concomitant]
     Indication: DRUG USE FOR UNKNOWN INDICATION
     Dosage: 2X5MG/WEEK
  4. SALAZOPYRINE [Concomitant]
     Indication: DRUG USE FOR UNKNOWN INDICATION
     Dosage: 2X2TABS/DAY
  5. MELOXICAM [Concomitant]
     Indication: PAIN
     Dosage: 50MG/DAY WHEN IN PAIN

REACTIONS (1)
  - LINITIS PLASTICA [None]
